FAERS Safety Report 22295500 (Version 2)
Quarter: 2023Q2

REPORT INFORMATION
  Report Type: Spontaneous
  Country: US (occurrence: US)
  Receive Date: 20230508
  Receipt Date: 20230510
  Transmission Date: 20230722
  Serious: Yes (Other)
  Sender: FDA-Public Use
  Company Number: US-PFIZER INC-202300180159

PATIENT
  Age: 80 Year
  Sex: Male

DRUGS (1)
  1. RUXIENCE [Suspect]
     Active Substance: RITUXIMAB-PVVR
     Indication: Lymphoma
     Dosage: UNK

REACTIONS (2)
  - Haemolysis [Unknown]
  - Red blood cell count decreased [Unknown]
